FAERS Safety Report 8510341-4 (Version None)
Quarter: 2012Q3

REPORT INFORMATION
  Report Type: 
  Country: None (occurrence: None)
  Receive Date: 20120713
  Receipt Date: 20120705
  Transmission Date: 20120928
  Serious: Yes (Hospitalization, Other)
  Sender: FDA-Public Use
  Company Number: US-BAXTER-2012BAX010172

PATIENT
  Sex: Female
  Weight: 56.82 kg

DRUGS (20)
  1. LASIX [Concomitant]
     Route: 048
  2. POTASSIUM CHLORIDE [Concomitant]
     Route: 048
  3. CELEBREX [Concomitant]
     Route: 048
  4. NASONEX [Concomitant]
  5. ARALAST NP [Suspect]
     Route: 042
     Dates: start: 20110201
  6. TRAZODONE HCL [Concomitant]
     Route: 048
  7. LYRICA [Concomitant]
     Route: 048
  8. ARALAST NP [Suspect]
     Indication: ALPHA-1 ANTI-TRYPSIN DEFICIENCY
     Route: 042
     Dates: start: 20100101
  9. ALBUTEROL [Concomitant]
  10. ASPIRIN [Concomitant]
     Route: 048
  11. ALBUTEROL [Concomitant]
  12. AVENOX [Concomitant]
     Indication: MULTIPLE SCLEROSIS
  13. PULMICORT [Concomitant]
     Dosage: 0.5 MG/2 ML
  14. PERFOROMIST [Concomitant]
  15. BACLOFEN [Concomitant]
     Route: 048
  16. TESSALON [Concomitant]
     Indication: COUGH
     Route: 048
  17. CALCIUM [Concomitant]
     Dosage: 2 TABLETS
     Route: 048
  18. SPIRIVA [Concomitant]
  19. FOSAMAX [Concomitant]
     Route: 048
  20. IMITREX [Concomitant]
     Indication: MIGRAINE
     Route: 048

REACTIONS (2)
  - PNEUMONIA [None]
  - MULTIPLE SCLEROSIS RELAPSE [None]
